FAERS Safety Report 4784247-0 (Version None)
Quarter: 2005Q3

REPORT INFORMATION
  Report Type: 
  Country: None (occurrence: None)
  Receive Date: 20050928
  Receipt Date: 20050919
  Transmission Date: 20060218
  Serious: Yes (Hospitalization)
  Sender: FDA-Public Use
  Company Number: HQWYE566521SEP05

PATIENT

DRUGS (1)
  1. TYGACIL [Suspect]
     Dosage: INTRAVENOUS
     Route: 042

REACTIONS (1)
  - PANCREATITIS [None]
